FAERS Safety Report 9607729 (Version 3)
Quarter: 2013Q4

REPORT INFORMATION
  Report Type: Report from Study
  Country: US (occurrence: US)
  Receive Date: 20131009
  Receipt Date: 20131230
  Transmission Date: 20140711
  Serious: Yes (Hospitalization)
  Sender: FDA-Public Use
  Company Number: US-ASTELLAS-2011US008626

PATIENT
  Age: 5 Year
  Sex: Male
  Weight: 48 kg

DRUGS (2)
  1. TACROLIMUS OINTMENT [Suspect]
     Indication: DERMATITIS ATOPIC
     Dosage: 0.1 %, UID/QD
     Route: 061
     Dates: start: 200806
  2. ZYRTEC [Concomitant]
     Indication: PRURITUS
     Dosage: 5 MG, UID/QD
     Route: 048
     Dates: start: 200909

REACTIONS (2)
  - Off label use [Unknown]
  - Periorbital cellulitis [Recovered/Resolved]
